FAERS Safety Report 24756491 (Version 1)
Quarter: 2024Q4

REPORT INFORMATION
  Report Type: Spontaneous
  Country: GB (occurrence: GB)
  Receive Date: 20241220
  Receipt Date: 20241220
  Transmission Date: 20250115
  Serious: Yes (Other)
  Sender: AUROBINDO
  Company Number: GB-MHRA-WEBRADR-202412062038343210-BZQJY

PATIENT
  Age: 25 Year
  Sex: Male
  Weight: 64 kg

DRUGS (1)
  1. TRAMADOL [Suspect]
     Active Substance: TRAMADOL
     Indication: Joint swelling
     Dosage: UNK
     Route: 048
     Dates: start: 20100101, end: 20100101

REACTIONS (1)
  - Panic attack [Recovered/Resolved with Sequelae]

NARRATIVE: CASE EVENT DATE: 20100101
